FAERS Safety Report 6279158-8 (Version None)
Quarter: 2009Q3

REPORT INFORMATION
  Report Type: 
  Country: None (occurrence: None)
  Receive Date: 20090720
  Receipt Date: 20090720
  Transmission Date: 20100115
  Serious: Yes (Congenital Anomaly)
  Sender: FDA-Public Use
  Company Number: None

PATIENT
  Sex: Male
  Weight: 99.7913 kg

DRUGS (1)
  1. ZICAM NASAL SPRAY GEL 0.50 FL.OZ/15ML [Suspect]
     Dosage: 2 SPRAYS EACH NOSTRIL 2 TIMES A DAY NASAL
     Route: 045
     Dates: start: 20090101, end: 20090601

REACTIONS (7)
  - CONDITION AGGRAVATED [None]
  - INJURY [None]
  - NASAL CONGESTION [None]
  - NASAL DISCOMFORT [None]
  - NASAL DISORDER [None]
  - NASAL DRYNESS [None]
  - THROAT IRRITATION [None]
